FAERS Safety Report 12935791 (Version 2)
Quarter: 2016Q4

REPORT INFORMATION
  Report Type: Report from Study
  Country: US (occurrence: US)
  Receive Date: 20161114
  Receipt Date: 20161117
  Transmission Date: 20170207
  Serious: Yes (Hospitalization)
  Sender: FDA-Public Use
  Company Number: US-ASTRAZENECA-2016SF14848

PATIENT
  Age: 14825 Day
  Sex: Female

DRUGS (7)
  1. ACARD [Concomitant]
     Active Substance: ASPIRIN
  2. DAPAGLIFLOZIN [Suspect]
     Active Substance: DAPAGLIFLOZIN
     Indication: TYPE 1 DIABETES MELLITUS
     Route: 048
     Dates: start: 20160215, end: 20161027
  3. HYDROXIZINUM [Concomitant]
  4. CLEXANE [Concomitant]
     Active Substance: ENOXAPARIN SODIUM
  5. ATORIS [Concomitant]
     Active Substance: ATORVASTATIN CALCIUM
  6. IV FLUIDS [Concomitant]
     Active Substance: UNSPECIFIED INGREDIENT
  7. SORBIFER [Concomitant]
     Active Substance: FERROUS SULFATE

REACTIONS (1)
  - Transient ischaemic attack [Recovered/Resolved]

NARRATIVE: CASE EVENT DATE: 20161027
